FAERS Safety Report 14053995 (Version 5)
Quarter: 2018Q1

REPORT INFORMATION
  Report Type: Report from Study
  Country: US (occurrence: US)
  Receive Date: 20171005
  Receipt Date: 20180215
  Transmission Date: 20180508
  Serious: Yes (Other)
  Sender: FDA-Public Use
  Company Number: PHEH2017US032019

PATIENT
  Sex: Female

DRUGS (1)
  1. COSENTYX [Suspect]
     Active Substance: SECUKINUMAB
     Indication: PSORIASIS
     Dosage: 300 MG, QW
     Route: 058

REACTIONS (15)
  - Erythema [Unknown]
  - Gait disturbance [Unknown]
  - Fatigue [Unknown]
  - Insomnia [Unknown]
  - Pruritus generalised [Unknown]
  - Rash papular [Unknown]
  - Urticaria [Unknown]
  - Dermatitis infected [Unknown]
  - Inflammation [Unknown]
  - Skin ulcer [Unknown]
  - Rash pustular [Unknown]
  - Scab [Unknown]
  - Pain in extremity [Unknown]
  - Chills [Unknown]
  - Staphylococcal infection [Unknown]
